FAERS Safety Report 12860556 (Version 1)
Quarter: 2016Q4

REPORT INFORMATION
  Report Type: Spontaneous
  Country: US (occurrence: US)
  Receive Date: 20161019
  Receipt Date: 20161019
  Transmission Date: 20170207
  Serious: Yes (Other)
  Sender: FDA-Public Use
  Company Number: US-PFIZER INC-2016486079

PATIENT
  Age: 75 Year
  Sex: Male

DRUGS (3)
  1. DILANTIN [Suspect]
     Active Substance: PHENYTOIN
  2. LOVASTATIN. [Concomitant]
     Active Substance: LOVASTATIN
  3. PHENOBARBITAL. [Concomitant]
     Active Substance: PHENOBARBITAL
     Dosage: 96 MG, 1X/DAY (THREE TABLETS AT NIGHT)

REACTIONS (2)
  - Seizure [Unknown]
  - Fatigue [Unknown]
